FAERS Safety Report 7152698-5 (Version None)
Quarter: 2010Q4

REPORT INFORMATION
  Report Type: 
  Country: None (occurrence: None)
  Receive Date: 20101213
  Receipt Date: 20101207
  Transmission Date: 20110411
  Serious: Yes (Hospitalization)
  Sender: FDA-Public Use
  Company Number: IT-BRISTOL-MYERS SQUIBB COMPANY-15432438

PATIENT
  Age: 67 Year
  Sex: Male

DRUGS (4)
  1. COUMADIN [Suspect]
     Indication: DEEP VEIN THROMBOSIS
     Dates: start: 20040301, end: 20101020
  2. ALTIAZEM [Concomitant]
     Dosage: 60MG TABLET
  3. MONOKET [Concomitant]
     Dosage: 20MG TABLET
  4. PRADIF [Concomitant]
     Dosage: MODIFIED RELEASE ORAL CAPS
     Route: 048

REACTIONS (3)
  - HAEMATEMESIS [None]
  - HAEMORRHAGE [None]
  - OESOPHAGEAL RUPTURE [None]
